FAERS Safety Report 16926175 (Version 1)
Quarter: 2019Q4

REPORT INFORMATION
  Report Type: Spontaneous
  Country: BR (occurrence: BR)
  Receive Date: 20191016
  Receipt Date: 20191016
  Transmission Date: 20200122
  Serious: Yes (Hospitalization, Other)
  Sender: FDA-Public Use
  Company Number: BR-SA-2019SA274633

PATIENT
  Sex: Female
  Weight: 60 kg

DRUGS (6)
  1. LANTUS [Suspect]
     Active Substance: INSULIN GLARGINE
     Dosage: 30 IU, QD
     Route: 065
  2. ROSUVASTATIN. [Concomitant]
     Active Substance: ROSUVASTATIN
     Indication: BLOOD CHOLESTEROL
     Route: 065
  3. LANTUS [Suspect]
     Active Substance: INSULIN GLARGINE
     Dosage: 32 U, QD
     Route: 065
  4. GALVUS MET [Concomitant]
     Active Substance: METFORMIN HYDROCHLORIDE\VILDAGLIPTIN
     Indication: DIABETES MELLITUS
     Route: 065
  5. CILOSTAZOL. [Concomitant]
     Active Substance: CILOSTAZOL
     Indication: CARDIOVASCULAR DISORDER
     Route: 065
  6. AAS [Concomitant]
     Active Substance: ASPIRIN
     Route: 065

REACTIONS (14)
  - Spinal operation [Unknown]
  - Spinal pain [Unknown]
  - Post procedural complication [Unknown]
  - Intervertebral disc protrusion [Unknown]
  - Peripheral artery occlusion [Unknown]
  - Cardiovascular disorder [Unknown]
  - Bacterial infection [Recovered/Resolved]
  - Gait inability [Unknown]
  - Stenosis [Unknown]
  - Osteomyelitis [Recovered/Resolved]
  - Spinal pain [Unknown]
  - Peripheral swelling [Unknown]
  - Gait disturbance [Unknown]
  - Inappropriate schedule of product administration [Unknown]

NARRATIVE: CASE EVENT DATE: 2006
